FAERS Safety Report 4701301-X (Version None)
Quarter: 2005Q2

REPORT INFORMATION
  Report Type: 
  Country: None (occurrence: None)
  Receive Date: 20050628
  Receipt Date: 20050609
  Transmission Date: 20051028
  Serious: Yes (Disabling, Other)
  Sender: FDA-Public Use
  Company Number: JP-MERCK-0506USA02040

PATIENT
  Age: 32 Year
  Sex: Female

DRUGS (7)
  1. COSMOGEN [Suspect]
     Indication: BENIGN HYDATIDIFORM MOLE
     Route: 042
     Dates: start: 20050221, end: 20050528
  2. METHOTREXATE [Concomitant]
     Indication: BENIGN HYDATIDIFORM MOLE
     Route: 030
     Dates: start: 20050124, end: 20050211
  3. XYLOCAINE [Concomitant]
     Indication: ANALGESIC THERAPY
     Route: 030
     Dates: start: 20050207, end: 20050211
  4. NASEA [Concomitant]
     Indication: PROPHYLAXIS
     Route: 048
     Dates: start: 20050223, end: 20050227
  5. PREDNISOLONE [Concomitant]
     Indication: PROPHYLAXIS
     Route: 048
     Dates: start: 20050224, end: 20050228
  6. PRIMPERAN INJ [Concomitant]
     Route: 065
  7. RHYTHMY [Concomitant]
     Route: 048

REACTIONS (6)
  - APHTHOUS STOMATITIS [None]
  - DRUG EXPOSURE DURING PREGNANCY [None]
  - HEPATIC FUNCTION ABNORMAL [None]
  - NAUSEA [None]
  - OPTIC NEUROPATHY [None]
  - VOMITING [None]
